FAERS Safety Report 6768360-4 (Version None)
Quarter: 2010Q2

REPORT INFORMATION
  Report Type: 
  Country: None (occurrence: None)
  Receive Date: 20100614
  Receipt Date: 20100610
  Transmission Date: 20101027
  Serious: Yes (Hospitalization)
  Sender: FDA-Public Use
  Company Number: FR-BRISTOL-MYERS SQUIBB COMPANY-15142466

PATIENT
  Sex: Male

DRUGS (6)
  1. APROVEL [Suspect]
     Dates: end: 20091120
  2. KARDEGIC [Concomitant]
     Dosage: 1 DF= 75
  3. NEXIUM [Concomitant]
     Dosage: 1 DF= 20
  4. DAFALGAN [Concomitant]
  5. CITALOPRAM HYDROBROMIDE [Concomitant]
  6. ALPRAZOLAM [Concomitant]

REACTIONS (3)
  - ECCHYMOSIS [None]
  - FALL [None]
  - HYPOTENSION [None]
